FAERS Safety Report 12779270 (Version 1)
Quarter: 2016Q3

REPORT INFORMATION
  Report Type: Spontaneous
  Country: US (occurrence: US)
  Receive Date: 20160926
  Receipt Date: 20160926
  Transmission Date: 20161109
  Serious: No
  Sender: FDA-Public Use
  Company Number: US-JAZZ-2016-US-011362

PATIENT
  Sex: Male

DRUGS (21)
  1. VYVANSE [Concomitant]
     Active Substance: LISDEXAMFETAMINE DIMESYLATE
  2. RITALIN [Concomitant]
     Active Substance: METHYLPHENIDATE HYDROCHLORIDE
  3. RITALIN LA [Concomitant]
     Active Substance: METHYLPHENIDATE HYDROCHLORIDE
  4. XYREM [Suspect]
     Active Substance: SODIUM OXYBATE
     Indication: NARCOLEPSY
     Dosage: 2.25 G, BID
     Route: 048
     Dates: start: 201302, end: 201302
  5. OVIDREL [Concomitant]
     Active Substance: CHORIOGONADOTROPIN ALFA
  6. VITAMIN D [Concomitant]
     Active Substance: CHOLECALCIFEROL
  7. SEROQUEL [Concomitant]
     Active Substance: QUETIAPINE FUMARATE
  8. COENZYME Q10 [Concomitant]
     Active Substance: UBIDECARENONE
  9. FISH OIL [Concomitant]
     Active Substance: FISH OIL
  10. XYREM [Suspect]
     Active Substance: SODIUM OXYBATE
     Dosage: DOSE ADJUSTMENTS
     Route: 048
     Dates: start: 201302, end: 201302
  11. XYREM [Suspect]
     Active Substance: SODIUM OXYBATE
     Dosage: 4.5 G, BID
     Route: 048
     Dates: start: 201302, end: 2013
  12. SEROQUEL XR [Concomitant]
     Active Substance: QUETIAPINE FUMARATE
  13. CLARITIN [Concomitant]
     Active Substance: LORATADINE
  14. CLONIDINE HCL [Concomitant]
     Active Substance: CLONIDINE HYDROCHLORIDE
  15. EFFEXOR XR [Concomitant]
     Active Substance: VENLAFAXINE HYDROCHLORIDE
  16. NUVIGIL [Concomitant]
     Active Substance: ARMODAFINIL
  17. WELLBUTRIN XL [Concomitant]
     Active Substance: BUPROPION HYDROCHLORIDE
  18. LEVOTHYROXINE. [Concomitant]
     Active Substance: LEVOTHYROXINE
  19. MULTI VITAMIN [Concomitant]
     Active Substance: VITAMINS
  20. ATORVASTATIN [Concomitant]
     Active Substance: ATORVASTATIN
  21. LOVAZA [Concomitant]
     Active Substance: OMEGA-3-ACID ETHYL ESTERS

REACTIONS (2)
  - Blood cholesterol increased [Unknown]
  - Hypothyroidism [Unknown]
